FAERS Safety Report 8143891-3 (Version None)
Quarter: 2012Q1

REPORT INFORMATION
  Report Type: 
  Country: None (occurrence: None)
  Receive Date: 20120217
  Receipt Date: 20120206
  Transmission Date: 20120608
  Serious: Yes (Death)
  Sender: FDA-Public Use
  Company Number: US-MYLANLABS-2012S1002884

PATIENT
  Age: 54 Year
  Sex: Female
  Weight: 90.72 kg

DRUGS (4)
  1. TRAZODONE HYDROCHLORIDE [Suspect]
  2. FENTANYL-100 [Suspect]
     Indication: BACK PAIN
     Route: 062
  3. METHADONE HCL [Suspect]
  4. PROCHLORPERAZINE [Suspect]

REACTIONS (1)
  - TOXICITY TO VARIOUS AGENTS [None]
